FAERS Safety Report 4366179-5 (Version None)
Quarter: 2004Q2

REPORT INFORMATION
  Report Type: 
  Country: None (occurrence: None)
  Receive Date: 20040524
  Receipt Date: 20040513
  Transmission Date: 20050107
  Serious: Yes (Disabling, Other)
  Sender: FDA-Public Use
  Company Number: 2004-05-0087

PATIENT
  Age: 69 Year
  Sex: Male

DRUGS (4)
  1. PEG-INTRON [Suspect]
     Indication: RENAL CANCER METASTATIC
     Dosage: 50-180MCG QW* SUBCUTANEOUS
     Route: 058
     Dates: start: 20030401, end: 20030601
  2. PEG-INTRON [Suspect]
     Indication: RENAL CANCER METASTATIC
     Dosage: 50-180MCG QW* SUBCUTANEOUS
     Route: 058
     Dates: start: 20030401, end: 20040301
  3. PEG-INTRON [Suspect]
     Indication: RENAL CANCER METASTATIC
     Dosage: 50-180MCG QW* SUBCUTANEOUS
     Route: 058
     Dates: start: 20030601, end: 20040301
  4. PANODIL COATED TABLETS [Concomitant]

REACTIONS (2)
  - BLINDNESS [None]
  - RETINAL VEIN THROMBOSIS [None]
